FAERS Safety Report 9146426 (Version 3)
Quarter: 2013Q2

REPORT INFORMATION
  Report Type: Spontaneous
  Country: BR (occurrence: BR)
  Receive Date: 20130307
  Receipt Date: 20130506
  Transmission Date: 20140414
  Serious: Yes (Other)
  Sender: FDA-Public Use
  Company Number: BR-PFIZER INC-2012244002

PATIENT
  Age: 53 Year
  Sex: Female
  Weight: 70 kg

DRUGS (8)
  1. SUTENT [Suspect]
     Indication: RENAL CELL CARCINOMA
     Dosage: 50 MG, CYCLE 4 PER 2, 1X/DAY
     Route: 048
     Dates: start: 20120928
  2. SUTENT [Suspect]
     Indication: RENAL CANCER
  3. HYDROCHLOROTHIAZIDE [Concomitant]
     Dosage: UNK
  4. GLIBENCLAMIDE [Concomitant]
     Dosage: 2 TABLETS OF 5 MG DAILY
  5. DAKTARIN ORAL GEL [Concomitant]
     Indication: GINGIVAL INFLAMMATION
  6. OMEPRAZOLE [Concomitant]
     Dosage: UNK
  7. ENALABAL [Concomitant]
  8. ENALAPRIL [Concomitant]

REACTIONS (39)
  - Hypertension [Unknown]
  - Diarrhoea haemorrhagic [Unknown]
  - Blood glucose increased [Unknown]
  - Headache [Unknown]
  - Abdominal pain upper [Unknown]
  - Dizziness [Unknown]
  - Chills [Not Recovered/Not Resolved]
  - Insomnia [Not Recovered/Not Resolved]
  - Dyspepsia [Not Recovered/Not Resolved]
  - Oral pain [Unknown]
  - Eating disorder [Not Recovered/Not Resolved]
  - Fatigue [Unknown]
  - Constipation [Unknown]
  - Glossodynia [Not Recovered/Not Resolved]
  - Pain [Not Recovered/Not Resolved]
  - Burning sensation [Unknown]
  - Visual impairment [Unknown]
  - Malaise [Unknown]
  - Asthenia [Not Recovered/Not Resolved]
  - Retching [Unknown]
  - Gastrointestinal disorder [Unknown]
  - Furuncle [Not Recovered/Not Resolved]
  - Ageusia [Not Recovered/Not Resolved]
  - Tongue injury [Not Recovered/Not Resolved]
  - Urine abnormality [Not Recovered/Not Resolved]
  - Dysgeusia [Not Recovered/Not Resolved]
  - Abdominal discomfort [Unknown]
  - Vomiting [Unknown]
  - Dyspepsia [Unknown]
  - Oral mucosal eruption [Not Recovered/Not Resolved]
  - Petechiae [Recovered/Resolved]
  - Diarrhoea [Unknown]
  - Platelet count decreased [Unknown]
  - Malaise [Unknown]
  - Tremor [Unknown]
  - Depression [Unknown]
  - Blister [Unknown]
  - Pigmentation disorder [Unknown]
  - Teeth brittle [Not Recovered/Not Resolved]
